FAERS Safety Report 8470621-8 (Version None)
Quarter: 2012Q2

REPORT INFORMATION
  Report Type: 
  Country: None (occurrence: None)
  Receive Date: 20120627
  Receipt Date: 20120622
  Transmission Date: 20120825
  Serious: Yes (Other)
  Sender: FDA-Public Use
  Company Number: PHEH2012US012556

PATIENT
  Sex: Male
  Weight: 73.923 kg

DRUGS (1)
  1. GILENYA [Suspect]
     Indication: MULTIPLE SCLEROSIS
     Dosage: 1 DF, QD
     Route: 048
     Dates: start: 20120420

REACTIONS (2)
  - CHEST DISCOMFORT [None]
  - ELECTROCARDIOGRAM CHANGE [None]
